FAERS Safety Report 5233583-2 (Version None)
Quarter: 2007Q1

REPORT INFORMATION
  Report Type: 
  Country: None (occurrence: None)
  Receive Date: 20061208
  Receipt Date: 20060302
  Transmission Date: 20070707
  Serious: Yes (Other)
  Sender: FDA-Public Use
  Company Number: 2006UW03573

PATIENT
  Age: 77 Year
  Sex: Female
  Weight: 89.911 kg

DRUGS (3)
  1. CRESTOR [Suspect]
     Indication: BLOOD CHOLESTEROL INCREASED
     Dosage: 10 MG QD PO
     Route: 048
  2. NEURONTIN [Concomitant]
  3. HYDROCHLOROTHIAZIDE [Concomitant]

REACTIONS (4)
  - HEADACHE [None]
  - MYALGIA [None]
  - PHOTOSENSITIVITY REACTION [None]
  - VISUAL ACUITY REDUCED [None]
